FAERS Safety Report 25351428 (Version 2)
Quarter: 2025Q2

REPORT INFORMATION
  Report Type: Spontaneous
  Country: NO (occurrence: NO)
  Receive Date: 20250523
  Receipt Date: 20250602
  Transmission Date: 20250717
  Serious: Yes (Death, Hospitalization)
  Sender: ROCHE
  Company Number: NO-ROCHE-10000288220

PATIENT
  Age: 5 Decade
  Sex: Male

DRUGS (9)
  1. RITUXIMAB [Suspect]
     Active Substance: RITUXIMAB
     Indication: Xanthogranuloma
     Route: 042
  2. GANCICLOVIR [Suspect]
     Active Substance: GANCICLOVIR
     Indication: Cytomegalovirus enterocolitis
     Route: 042
  3. BENDAMUSTINE [Suspect]
     Active Substance: BENDAMUSTINE
     Indication: Xanthogranuloma
     Route: 042
  4. PREDNISOLONE [Concomitant]
     Active Substance: PREDNISOLONE
  5. METHOTREXATE [Concomitant]
     Active Substance: METHOTREXATE
  6. PENICILLIN G [Concomitant]
     Active Substance: PENICILLIN G
     Route: 042
  7. GENTAMICIN [Concomitant]
     Active Substance: GENTAMICIN
     Route: 042
  8. METHYLPREDNISOLONE [Concomitant]
     Active Substance: METHYLPREDNISOLONE
     Route: 042
  9. PIPERACILLIN SODIUM\TAZOBACTAM SODIUM [Concomitant]
     Active Substance: PIPERACILLIN SODIUM\TAZOBACTAM SODIUM

REACTIONS (10)
  - Enterocolitis [Fatal]
  - Infection [Fatal]
  - Escherichia infection [Unknown]
  - Hypovolaemia [Unknown]
  - Enterococcal infection [Unknown]
  - Pseudomonas infection [Unknown]
  - Cytomegalovirus infection [Fatal]
  - Sepsis [Fatal]
  - Norovirus infection [Unknown]
  - Off label use [Unknown]
